FAERS Safety Report 11106428 (Version 1)
Quarter: 2015Q2

REPORT INFORMATION
  Report Type: Spontaneous
  Country: US (occurrence: US)
  Receive Date: 20150512
  Receipt Date: 20150512
  Transmission Date: 20150821
  Serious: Yes (Other)
  Sender: FDA-Public Use
  Company Number: US-PFIZER INC-2015158983

PATIENT
  Sex: Male

DRUGS (3)
  1. TIKOSYN [Suspect]
     Active Substance: DOFETILIDE
     Dosage: UNK
  2. METFORMIN HCL [Interacting]
     Active Substance: METFORMIN HYDROCHLORIDE
     Dosage: UNK
  3. LASIX [Interacting]
     Active Substance: FUROSEMIDE
     Dosage: UNK

REACTIONS (4)
  - Thyroid disorder [Unknown]
  - Blood testosterone decreased [Unknown]
  - Atrial fibrillation [Not Recovered/Not Resolved]
  - Drug interaction [Unknown]
